FAERS Safety Report 18932701 (Version 1)
Quarter: 2021Q1

REPORT INFORMATION
  Report Type: Spontaneous
  Country: US (occurrence: US)
  Receive Date: 20210223
  Receipt Date: 20210223
  Transmission Date: 20210420
  Serious: No
  Sender: FDA-Public Use
  Company Number: None

PATIENT
  Age: 72 Year
  Sex: Male
  Weight: 69.4 kg

DRUGS (14)
  1. CENTRUM [Concomitant]
     Active Substance: VITAMINS
  2. ELIQUIS [Concomitant]
     Active Substance: APIXABAN
  3. TURMERIC CURCUMIN [Concomitant]
     Active Substance: HERBALS\TURMERIC
  4. GLUCOSAMINE HCL [Concomitant]
     Active Substance: GLUCOSAMINE
  5. VITAMIN C [Concomitant]
     Active Substance: ASCORBIC ACID
  6. GABAPENTIN. [Concomitant]
     Active Substance: GABAPENTIN
  7. MAGNESIUM [Concomitant]
     Active Substance: MAGNESIUM
  8. CAPECITABINE. [Suspect]
     Active Substance: CAPECITABINE
     Indication: PANCREATIC CARCINOMA
     Route: 048
     Dates: start: 20201204, end: 20210223
  9. MIRALAX [Concomitant]
     Active Substance: POLYETHYLENE GLYCOL 3350
  10. GEMCITABINE HCL [Concomitant]
     Active Substance: GEMCITABINE HYDROCHLORIDE
  11. CALCIUM 500 + D [Concomitant]
     Active Substance: CALCIUM\VITAMIN D
  12. ZINC. [Concomitant]
     Active Substance: ZINC
  13. VITAMIN D3 [Concomitant]
     Active Substance: CHOLECALCIFEROL
  14. VITAMIN B12 [Concomitant]
     Active Substance: CYANOCOBALAMIN

REACTIONS (1)
  - Disease progression [None]

NARRATIVE: CASE EVENT DATE: 20210223
